FAERS Safety Report 5987582-3 (Version None)
Quarter: 2008Q4

REPORT INFORMATION
  Report Type: 
  Country: None (occurrence: None)
  Receive Date: 20081209
  Receipt Date: 20081202
  Transmission Date: 20090506
  Serious: Yes (Other)
  Sender: FDA-Public Use
  Company Number: CA-ASTRAZENECA-2008UW26616

PATIENT
  Age: 62 Year
  Sex: Male

DRUGS (5)
  1. CRESTOR [Suspect]
     Indication: BLOOD CHOLESTEROL
     Route: 048
     Dates: start: 20060101
  2. AMITRIPTYLINE HCL [Concomitant]
  3. CIALIS [Concomitant]
  4. TORADOL [Concomitant]
  5. PROSCAR [Concomitant]

REACTIONS (1)
  - INFLAMMATION [None]
